FAERS Safety Report 21067585 (Version 1)
Quarter: 2022Q3

REPORT INFORMATION
  Report Type: Spontaneous
  Country: NL (occurrence: NL)
  Receive Date: 20220712
  Receipt Date: 20220712
  Transmission Date: 20221027
  Serious: Yes (Other)
  Sender: FDA-Public Use
  Company Number: NL-LRB-00814871

PATIENT
  Age: 77 Year
  Sex: Male
  Weight: 86 kg

DRUGS (6)
  1. ATORVASTATIN [Suspect]
     Active Substance: ATORVASTATIN
     Indication: Hypercholesterolaemia
     Dosage: 40 MILLIGRAM, DAILY, 1X PER DAY, TABLET
     Route: 065
     Dates: start: 202005
  2. BARNIDIPINE [Concomitant]
     Active Substance: BARNIDIPINE
     Indication: Product used for unknown indication
     Dosage: MODIFIED-RELEASE CAPSULE, 10 MG (MILLIGRAMS), UNK
     Route: 065
  3. ACETYLSALICYLZUUR TABLET  80MG / Brand name not specified [Concomitant]
     Indication: Product used for unknown indication
     Dosage: TABLET, 80 MG (MILLIGRAM), UNK
     Route: 065
  4. PANTOPRAZOL INJECTIEPOEDER 40MG / Brand name not specified [Concomitant]
     Indication: Product used for unknown indication
     Dosage: POWDER INJECTION FLUID, 40 MG (MILLIGRAMS), UNK
     Route: 065
  5. ATENOLOL TABLET 100MG / Brand name not specified [Concomitant]
     Indication: Product used for unknown indication
     Dosage: TABLET, 100 MG (MILLIGRAM), UNK
     Route: 065
  6. LOSARTAN TABLET FO  50MG / Brand name not specified [Concomitant]
     Indication: Product used for unknown indication
     Dosage: FILM-COATED TABLET, 50 MG (MILLIGRAMS), UNK
     Route: 065

REACTIONS (2)
  - Muscle rupture [Recovering/Resolving]
  - Muscle spasms [Unknown]

NARRATIVE: CASE EVENT DATE: 20220531
